FAERS Safety Report 21863635 (Version 5)
Quarter: 2023Q2

REPORT INFORMATION
  Report Type: Spontaneous
  Country: JP (occurrence: JP)
  Receive Date: 20230116
  Receipt Date: 20230427
  Transmission Date: 20230722
  Serious: Yes (Life-Threatening, Hospitalization, Disabling, Other)
  Sender: FDA-Public Use
  Company Number: JP-BRISTOL-MYERS SQUIBB COMPANY-2022-153700

PATIENT
  Age: 55 Year
  Sex: Male
  Weight: 57 kg

DRUGS (22)
  1. YERVOY [Suspect]
     Active Substance: IPILIMUMAB
     Indication: Renal cell carcinoma
     Route: 041
     Dates: start: 202210
  2. YERVOY [Suspect]
     Active Substance: IPILIMUMAB
     Route: 041
     Dates: start: 20221205, end: 20221205
  3. OPDIVO [Suspect]
     Active Substance: NIVOLUMAB
     Indication: Renal cell carcinoma
     Route: 041
     Dates: start: 202210
  4. OPDIVO [Suspect]
     Active Substance: NIVOLUMAB
     Route: 041
     Dates: start: 20221101, end: 20221101
  5. KENKETU GLOVENIN-I [Concomitant]
     Active Substance: HUMAN IMMUNOGLOBULIN G
     Indication: Product used for unknown indication
     Dosage: 5 REPS
     Dates: start: 20230108, end: 20230112
  6. BISOPROLOL FUMARATE [Concomitant]
     Active Substance: BISOPROLOL FUMARATE
     Indication: Product used for unknown indication
     Route: 048
  7. ACETAMINOPHEN [Concomitant]
     Active Substance: ACETAMINOPHEN
     Indication: Product used for unknown indication
     Route: 048
     Dates: start: 20221106
  8. EPINASTINE HYDROCHLORIDE [Concomitant]
     Active Substance: EPINASTINE HYDROCHLORIDE
     Indication: Product used for unknown indication
     Route: 048
     Dates: start: 20221216, end: 20221223
  9. EPINASTINE HYDROCHLORIDE [Concomitant]
     Active Substance: EPINASTINE HYDROCHLORIDE
     Route: 048
     Dates: start: 20221128, end: 20221210
  10. CLOPERASTINE HYDROCHLORIDE [Concomitant]
     Active Substance: CLOPERASTINE HYDROCHLORIDE
     Indication: Product used for unknown indication
     Route: 048
     Dates: start: 20221205, end: 20221223
  11. NAPROXEN [Concomitant]
     Active Substance: NAPROXEN
     Indication: Renal cell carcinoma
     Route: 048
     Dates: start: 20221217, end: 20230105
  12. VONOPRAZAN FUMARATE [Concomitant]
     Active Substance: VONOPRAZAN FUMARATE
     Indication: Prophylaxis
     Route: 048
     Dates: start: 20221217, end: 20221230
  13. MIYA-BM [Concomitant]
     Active Substance: CLOSTRIDIUM BUTYRICUM SPORES STRAIN M-55
     Indication: Product used for unknown indication
     Dosage: TRANSLUMINAL TUBE
     Dates: start: 20221228
  14. NEXIUM [Concomitant]
     Active Substance: ESOMEPRAZOLE MAGNESIUM
     Indication: Prophylaxis
     Dosage: TRANSLUMINAL TUBE
     Dates: start: 20221231, end: 20230105
  15. LEVETIRACETAM [Concomitant]
     Active Substance: LEVETIRACETAM
     Indication: Prophylaxis
     Dosage: TRANSLUMINAL TUBE
     Dates: start: 20230105, end: 20230105
  16. LEVETIRACETAM [Concomitant]
     Active Substance: LEVETIRACETAM
     Route: 041
     Dates: start: 20221227, end: 20230104
  17. POTASSIUM GLUCONATE [Concomitant]
     Active Substance: POTASSIUM GLUCONATE
     Indication: Product used for unknown indication
     Dosage: TRANSLUMINAL TUBE
     Dates: start: 20230104, end: 20230113
  18. ACYCLOVIR [Concomitant]
     Active Substance: ACYCLOVIR
     Indication: Product used for unknown indication
     Route: 041
     Dates: start: 20221224, end: 20230104
  19. CEFTAZIDIME [Concomitant]
     Active Substance: CEFTAZIDIME
     Indication: Product used for unknown indication
     Route: 041
     Dates: start: 20221224, end: 20230104
  20. AMPICILLIN [Concomitant]
     Active Substance: AMPICILLIN
     Indication: Product used for unknown indication
     Dosage: 1~2G/1 TIME
     Route: 041
     Dates: start: 20221224, end: 20230104
  21. VANCOMYCIN HYDROCHLORIDE [Concomitant]
     Active Substance: VANCOMYCIN HYDROCHLORIDE
     Indication: Product used for unknown indication
     Dosage: 500 - 1750 G/1 TIME
     Route: 041
     Dates: start: 20221224, end: 20230104
  22. OMEPRAZOLE [Concomitant]
     Active Substance: OMEPRAZOLE
     Indication: Product used for unknown indication
     Route: 041
     Dates: start: 20221224, end: 20230104

REACTIONS (8)
  - Tumour haemorrhage [Recovering/Resolving]
  - Toxic epidermal necrolysis [Recovered/Resolved]
  - Meningitis [Unknown]
  - Encephalitis [Not Recovered/Not Resolved]
  - Speech disorder [Unknown]
  - Platelet count decreased [Recovering/Resolving]
  - Altered state of consciousness [Recovered/Resolved with Sequelae]
  - Device related infection [Recovering/Resolving]

NARRATIVE: CASE EVENT DATE: 20221106
